FAERS Safety Report 10228956 (Version 3)
Quarter: 2014Q3

REPORT INFORMATION
  Report Type: Spontaneous
  Country: US (occurrence: US)
  Receive Date: 20140610
  Receipt Date: 20140827
  Transmission Date: 20150326
  Serious: Yes (Death, Hospitalization)
  Sender: FDA-Public Use
  Company Number: US-GLAXOSMITHKLINE-A1076493A

PATIENT
  Age: 71 Year
  Sex: Male

DRUGS (1)
  1. ADVAIR HFA [Suspect]
     Active Substance: FLUTICASONE PROPIONATE\SALMETEROL XINAFOATE
     Indication: CHRONIC OBSTRUCTIVE PULMONARY DISEASE
     Route: 055
     Dates: start: 20100101

REACTIONS (4)
  - Cardiac failure congestive [Fatal]
  - Myocardial infarction [Unknown]
  - Exposure to chemical pollution [Unknown]
  - Drug administration error [Unknown]

NARRATIVE: CASE EVENT DATE: 20140511
